FAERS Safety Report 14545050 (Version 1)
Quarter: 2018Q1

REPORT INFORMATION
  Report Type: Spontaneous
  Country: US (occurrence: US)
  Receive Date: 20180218
  Receipt Date: 20180218
  Transmission Date: 20180509
  Serious: No
  Sender: FDA-Public Use
  Company Number: US-JNJFOC-20180139345

PATIENT
  Age: 74 Year
  Sex: Male
  Weight: 84.82 kg

DRUGS (2)
  1. MENS ROGAINE EXTRA STRENGTH [Suspect]
     Active Substance: MINOXIDIL
     Route: 061
  2. MENS ROGAINE EXTRA STRENGTH [Suspect]
     Active Substance: MINOXIDIL
     Indication: ALOPECIA
     Dosage: 1 TABLESPOON TWICE PER DAY
     Route: 061

REACTIONS (3)
  - Skin disorder [Recovering/Resolving]
  - Rash pruritic [Recovering/Resolving]
  - Incorrect dose administered [Unknown]
